FAERS Safety Report 25604259 (Version 2)
Quarter: 2025Q3

REPORT INFORMATION
  Report Type: Spontaneous
  Country: MX (occurrence: MX)
  Receive Date: 20250725
  Receipt Date: 20250730
  Transmission Date: 20251021
  Serious: Yes (Death, Other)
  Sender: ROCHE
  Company Number: MX-ROCHE-10000345485

PATIENT
  Age: 32 Year
  Sex: Male

DRUGS (5)
  1. HEMLIBRA [Suspect]
     Active Substance: EMICIZUMAB-KXWH
     Indication: Factor VIII deficiency
     Route: 065
     Dates: start: 201912
  2. FLUOXETINE [Concomitant]
     Active Substance: FLUOXETINE HYDROCHLORIDE
     Indication: Anxiety
  3. FLUOXETINE [Concomitant]
     Active Substance: FLUOXETINE HYDROCHLORIDE
     Indication: Depression
  4. PAROXETINE [Concomitant]
     Active Substance: PAROXETINE
     Indication: Anxiety
  5. PAROXETINE [Concomitant]
     Active Substance: PAROXETINE
     Indication: Depression

REACTIONS (3)
  - Physical assault [Unknown]
  - Brain death [Fatal]
  - Injury [Fatal]

NARRATIVE: CASE EVENT DATE: 20250701
